FAERS Safety Report 7373702-5 (Version None)
Quarter: 2011Q1

REPORT INFORMATION
  Report Type: 
  Country: None (occurrence: None)
  Receive Date: 20110325
  Receipt Date: 20110311
  Transmission Date: 20110831
  Serious: Yes (Hospitalization)
  Sender: FDA-Public Use
  Company Number: PHHY2011US21856

PATIENT
  Sex: Female

DRUGS (2)
  1. EXJADE [Suspect]
     Indication: IRON OVERLOAD
     Dosage: UNK
     Route: 048
     Dates: start: 20060604, end: 20071002
  2. EXJADE [Suspect]
     Dosage: UNK
     Route: 048
     Dates: start: 20080123

REACTIONS (4)
  - ANAEMIA [None]
  - SPINAL FRACTURE [None]
  - INFLAMMATION [None]
  - PANCYTOPENIA [None]
